FAERS Safety Report 14739825 (Version 2)
Quarter: 2018Q2

REPORT INFORMATION
  Report Type: Spontaneous
  Country: US (occurrence: US)
  Receive Date: 20180410
  Receipt Date: 20180511
  Transmission Date: 20180711
  Serious: No
  Sender: FDA-Public Use
  Company Number: US-PFIZER INC-2018144244

PATIENT
  Age: 61 Year
  Sex: Female

DRUGS (1)
  1. XELJANZ [Suspect]
     Active Substance: TOFACITINIB CITRATE
     Dosage: 5 MG, 2X/DAY

REACTIONS (6)
  - Upper respiratory tract infection [Unknown]
  - Arthralgia [Unknown]
  - Abdominal discomfort [Unknown]
  - Pulmonary mass [Unknown]
  - Joint swelling [Unknown]
  - Pain in extremity [Unknown]
